FAERS Safety Report 8619784-1 (Version None)
Quarter: 2012Q3

REPORT INFORMATION
  Report Type: 
  Country: None (occurrence: None)
  Receive Date: 20120824
  Receipt Date: 20120813
  Transmission Date: 20120928
  Serious: Yes (Disabling, Other)
  Sender: FDA-Public Use
  Company Number: US-PERRIGO-12US007034

PATIENT
  Sex: Male
  Weight: 72.562 kg

DRUGS (4)
  1. NAPROXEN SODIUM [Suspect]
     Indication: NECK PAIN
     Dosage: 220 MG, BID
     Route: 048
     Dates: start: 20120715, end: 20120716
  2. NAPROXEN SODIUM [Suspect]
     Indication: BACK PAIN
  3. TERAZOSIN HYDROCHLORIDE [Concomitant]
     Indication: PROSTATOMEGALY
     Dosage: UNKNOWN, UNKNOWN
     Route: 048
     Dates: start: 20050101
  4. PLAVIX [Concomitant]
     Indication: CARDIAC DISORDER
     Dosage: ONE TABLET, DAILY
     Route: 048
     Dates: start: 20020101

REACTIONS (6)
  - EYE SWELLING [None]
  - DIZZINESS [None]
  - VISUAL ACUITY REDUCED [None]
  - AMNESIA [None]
  - CEREBRAL INFARCTION [None]
  - VISION BLURRED [None]
